FAERS Safety Report 17147333 (Version 8)
Quarter: 2020Q4

REPORT INFORMATION
  Report Type: Report from Study
  Country: US (occurrence: US)
  Receive Date: 20191212
  Receipt Date: 20201015
  Transmission Date: 20210113
  Serious: No
  Sender: FDA-Public Use
  Company Number: NVSC2019US002306

PATIENT
  Age: 72 Year
  Sex: Male

DRUGS (2)
  1. COSENTYX [Suspect]
     Active Substance: SECUKINUMAB
     Dosage: 300 MG, QMO
     Route: 058
  2. COSENTYX [Suspect]
     Active Substance: SECUKINUMAB
     Indication: PSORIASIS
     Dosage: 300 MG, QW
     Route: 058
     Dates: start: 20190829

REACTIONS (11)
  - Arthralgia [Unknown]
  - Accidental exposure to product [Unknown]
  - Limb mass [Unknown]
  - Injection site pain [Unknown]
  - Joint dislocation [Unknown]
  - Needle issue [Unknown]
  - Nerve injury [Unknown]
  - Incorrect dose administered [Unknown]
  - Rib fracture [Unknown]
  - Pruritus [Unknown]
  - Fall [Unknown]

NARRATIVE: CASE EVENT DATE: 20190926
